FAERS Safety Report 5502097-4 (Version None)
Quarter: 2007Q4

REPORT INFORMATION
  Report Type: 
  Country: None (occurrence: None)
  Receive Date: 20071019
  Receipt Date: 20061221
  Transmission Date: 20080405
  Serious: Yes (Other)
  Sender: FDA-Public Use
  Company Number: PHEH2006US15433

PATIENT
  Sex: Male

DRUGS (1)
  1. ZOMETA [Suspect]
     Indication: MULTIPLE MYELOMA
     Dosage: QMONTH
     Dates: start: 20060901

REACTIONS (5)
  - AGITATION [None]
  - ANGER [None]
  - CONFUSIONAL STATE [None]
  - FATIGUE [None]
  - PAIN [None]
